FAERS Safety Report 8086370-4 (Version None)
Quarter: 2012Q1

REPORT INFORMATION
  Report Type: 
  Country: None (occurrence: None)
  Receive Date: 20120128
  Receipt Date: 20110510
  Transmission Date: 20120608
  Serious: No
  Sender: FDA-Public Use
  Company Number: US-ABBOTT-11P-163-0724646-00

PATIENT
  Age: 31 Year
  Sex: Female

DRUGS (8)
  1. FOLIC ACID [Concomitant]
     Indication: PRODUCT USED FOR UNKNOWN INDICATION
     Dosage: DAILY
  2. HUMIRA [Suspect]
     Dates: start: 20110401
  3. VITAMIN B12 COMPLEX [Concomitant]
     Indication: PRODUCT USED FOR UNKNOWN INDICATION
     Dosage: DAILY
  4. LORAZEPAM [Concomitant]
     Indication: STRESS
  5. HUMIRA [Suspect]
     Indication: RHEUMATOID ARTHRITIS
     Dates: start: 20110105
  6. PREDNISONE TAB [Concomitant]
     Indication: PRODUCT USED FOR UNKNOWN INDICATION
  7. NEURONTIN [Concomitant]
     Indication: NEURALGIA
     Dosage: INCREASED TO 600MG 1-2 TABS EVERY NIGHT AS NEEDED
  8. HYDROCODONE BITARTRATE [Concomitant]
     Indication: PAIN
     Dosage: INCREASED TO 7.5 MG FOUR TIMES A DAY AS NEEDED

REACTIONS (6)
  - STRESS [None]
  - CYST [None]
  - PAIN [None]
  - GASTRIC DISORDER [None]
  - ANAL NEOPLASM [None]
  - RHEUMATOID ARTHRITIS [None]
